FAERS Safety Report 8814802 (Version 2)
Quarter: 2012Q4

REPORT INFORMATION
  Report Type: 
  Country: US (occurrence: US)
  Receive Date: 20120928
  Receipt Date: 20121015
  Transmission Date: 20130627
  Serious: No
  Sender: FDA-Public Use
  Company Number: US-PFIZER INC-2012239834

PATIENT
  Age: 59 Year
  Sex: Male
  Weight: 63.49 kg

DRUGS (7)
  1. LYRICA [Suspect]
     Indication: POLYNEUROPATHY
     Dosage: 50 mg, 3x/day
     Route: 048
     Dates: start: 201208, end: 201209
  2. GABAPENTIN [Suspect]
     Indication: POLYNEUROPATHY
     Dosage: 300 mg, UNK
     Route: 048
     Dates: start: 2010, end: 201208
  3. GABAPENTIN [Suspect]
     Dosage: 600 mg, UNK
  4. GABAPENTIN [Suspect]
     Dosage: 300 mg, UNK
     Route: 048
     Dates: start: 201209
  5. HYDROMORPHONE [Concomitant]
     Dosage: 4 mg, as needed
  6. DIAZEPAM [Concomitant]
     Dosage: UNK
  7. VALIUM [Concomitant]
     Indication: ANXIETY
     Dosage: UNK,as needed

REACTIONS (4)
  - Increased appetite [Unknown]
  - Drug ineffective [Unknown]
  - Insomnia [Unknown]
  - Pain [Unknown]
